FAERS Safety Report 17289564 (Version 1)
Quarter: 2020Q1

REPORT INFORMATION
  Report Type: Spontaneous
  Country: US (occurrence: US)
  Receive Date: 20200120
  Receipt Date: 20200120
  Transmission Date: 20200409
  Serious: Yes (Life-Threatening, Hospitalization)
  Sender: FDA-Public Use
  Company Number: US-HONG KONG KING-FRIEND INDUSTRIAL COMPANY-2020NKF00002

PATIENT
  Age: 50 Year
  Sex: Male

DRUGS (1)
  1. HEPARIN SODIUM. [Suspect]
     Active Substance: HEPARIN SODIUM
     Indication: PULMONARY EMBOLISM
     Route: 065

REACTIONS (3)
  - Embolism [Recovered/Resolved]
  - Heparin-induced thrombocytopenia [Recovered/Resolved]
  - Pulseless electrical activity [Recovered/Resolved]
